FAERS Safety Report 11519929 (Version 1)
Quarter: 2015Q3

REPORT INFORMATION
  Report Type: Spontaneous
  Country: US (occurrence: None)
  Receive Date: 20150917
  Receipt Date: 20150917
  Transmission Date: 20151125
  Serious: Yes (Other)
  Sender: FDA-Public Use
  Company Number: None

PATIENT
  Age: 50 Year
  Sex: Female

DRUGS (1)
  1. CYCLOSPORINE 100MG [Suspect]
     Active Substance: CYCLOSPORINE

REACTIONS (1)
  - Pain [None]

NARRATIVE: CASE EVENT DATE: 20150916
